FAERS Safety Report 14474894 (Version 1)
Quarter: 2018Q1

REPORT INFORMATION
  Report Type: Spontaneous
  Country: US (occurrence: US)
  Receive Date: 20180130
  Receipt Date: 20180130
  Transmission Date: 20180509
  Serious: Yes (Other)
  Sender: FDA-Public Use
  Company Number: None

PATIENT
  Age: 6 Year
  Sex: Male
  Weight: 24.3 kg

DRUGS (1)
  1. OSELTAMAVIR LIQUID [Suspect]
     Active Substance: OSELTAMIVIR
     Route: 048
     Dates: start: 20180123, end: 20180124

REACTIONS (2)
  - Hallucination [None]
  - Abnormal behaviour [None]

NARRATIVE: CASE EVENT DATE: 20180125
